FAERS Safety Report 25870389 (Version 1)
Quarter: 2025Q4

REPORT INFORMATION
  Report Type: Spontaneous
  Country: IN (occurrence: IN)
  Receive Date: 20251001
  Receipt Date: 20251001
  Transmission Date: 20260117
  Serious: Yes (Hospitalization)
  Sender: Alora Pharma
  Company Number: IN-ACELLA PHARMACEUTICALS, LLC-2025ALO02516

PATIENT
  Age: 27 Year
  Sex: Male

DRUGS (5)
  1. PHENYTOIN SODIUM [Suspect]
     Active Substance: PHENYTOIN SODIUM
     Indication: Seizure
     Dosage: 100 MG, 3X/DAY
     Route: 065
  2. CARBAMAZEPINE [Suspect]
     Active Substance: CARBAMAZEPINE
     Indication: Seizure
     Dosage: 300 MG, 2X/DAY
     Route: 065
  3. VALPROATE SODIUM [Concomitant]
     Active Substance: VALPROATE SODIUM
     Indication: Seizure
     Dosage: 500 MG, 2X/DAY
     Route: 065
  4. FLUOXETINE [Concomitant]
     Active Substance: FLUOXETINE HYDROCHLORIDE
     Indication: Psychogenic seizure
     Dosage: 20 MG, 2X/DAY
     Route: 065
  5. CLONAZEPAM [Concomitant]
     Active Substance: CLONAZEPAM
     Indication: Psychogenic seizure
     Dosage: 0.5 MG, 1X/DAY
     Route: 065

REACTIONS (2)
  - Seizure [Recovered/Resolved]
  - Hypocalcaemia [Recovering/Resolving]
